FAERS Safety Report 17808770 (Version 2)
Quarter: 2023Q1

REPORT INFORMATION
  Report Type: Spontaneous
  Country: DE (occurrence: DE)
  Receive Date: 20200520
  Receipt Date: 20230327
  Transmission Date: 20230418
  Serious: Yes (Death, Other)
  Sender: FDA-Public Use
  Company Number: DE-NOVARTISPH-NVSC2020DE137526

PATIENT
  Age: 22 Year
  Sex: Female

DRUGS (7)
  1. PREDNISOLONE [Suspect]
     Active Substance: PREDNISOLONE
     Indication: Acute lymphocytic leukaemia
     Dosage: 100 MG, QD (X 4 WEEKS) AS INDUCTION THERAPY
     Route: 065
     Dates: start: 199610
  2. PREDNISOLONE [Suspect]
     Active Substance: PREDNISOLONE
     Dosage: 100 MG, QD (REINDUCTION)
     Route: 065
     Dates: start: 1997
  3. DOXORUBICIN HYDROCHLORIDE [Suspect]
     Active Substance: DOXORUBICIN HYDROCHLORIDE
     Indication: Acute lymphocytic leukaemia
     Dosage: UNK UNK, QW (INDUCTION)
     Route: 065
  4. ASPARAGINASE [Suspect]
     Active Substance: ASPARAGINASE
     Indication: Acute lymphocytic leukaemia
     Dosage: UNK UNK, CYCLIC
     Route: 065
     Dates: start: 199610
  5. VINCRISTINE SULFATE [Suspect]
     Active Substance: VINCRISTINE SULFATE
     Indication: Acute lymphocytic leukaemia
     Dosage: UNK UNK, CYCLIC (INDUCTION)
     Route: 065
     Dates: start: 199610
  6. VINCRISTINE SULFATE [Suspect]
     Active Substance: VINCRISTINE SULFATE
     Dosage: 1 DOSAGE FORM, QW (REINDUCTION)
     Route: 065
     Dates: start: 1997
  7. DAUNORUBICIN HYDROCHLORIDE [Suspect]
     Active Substance: DAUNORUBICIN HYDROCHLORIDE
     Indication: Acute lymphocytic leukaemia
     Dosage: UNK, CYCLIC (INDUCTION)
     Route: 065
     Dates: start: 199610

REACTIONS (2)
  - Herpes simplex [Fatal]
  - Cholangitis chronic [Fatal]

NARRATIVE: CASE EVENT DATE: 19961001
